FAERS Safety Report 11394644 (Version 1)
Quarter: 2015Q3

REPORT INFORMATION
  Report Type: Spontaneous
  Country: US (occurrence: None)
  Receive Date: 20150817
  Receipt Date: 20150817
  Transmission Date: 20151125
  Serious: No
  Sender: FDA-Public Use
  Company Number: None

PATIENT
  Age: 67 Year
  Sex: Female
  Weight: 65.77 kg

DRUGS (3)
  1. DESONIDE. [Suspect]
     Active Substance: DESONIDE
     Indication: DRY SKIN
     Dosage: APPLIED TO A SURFACE, USUALLY THE SKIN
     Dates: start: 20150701, end: 20150706
  2. VITAMIN D [Concomitant]
     Active Substance: CHOLECALCIFEROL
  3. CALCIUM [Concomitant]
     Active Substance: CALCIUM

REACTIONS (1)
  - Application site discolouration [None]

NARRATIVE: CASE EVENT DATE: 20150701
